FAERS Safety Report 9803066 (Version 1)
Quarter: 2014Q1

REPORT INFORMATION
  Report Type: Spontaneous
  Country: US (occurrence: None)
  Receive Date: 20140107
  Receipt Date: 20140107
  Transmission Date: 20141002
  Serious: Yes (Other)
  Sender: FDA-Public Use
  Company Number: None

PATIENT
  Age: 22 Month
  Sex: Female
  Weight: 10.43 kg

DRUGS (1)
  1. AMOXILLIAN [Suspect]
     Indication: EAR INFECTION
     Dosage: 5 ML 2X A DAY  TWICE DAILY  TAKEN BY MOUTH
     Route: 048
     Dates: start: 20131228, end: 20140106

REACTIONS (1)
  - Product quality issue [None]
